FAERS Safety Report 8564228-1 (Version None)
Quarter: 2012Q3

REPORT INFORMATION
  Report Type: 
  Country: None (occurrence: None)
  Receive Date: 20120803
  Receipt Date: 20120724
  Transmission Date: 20120928
  Serious: Yes (Other)
  Sender: FDA-Public Use
  Company Number: US-JNJFOC-20120712617

PATIENT

DRUGS (4)
  1. ACETAMINOPHEN [Suspect]
     Indication: PRODUCT USED FOR UNKNOWN INDICATION
     Dosage: RANGE 5-75 G
     Route: 065
  2. DIPHENHYDRAMINE HCL [Suspect]
     Indication: PRODUCT USED FOR UNKNOWN INDICATION
     Route: 065
  3. ACETAMINOPHEN/HYDROCODONE BITARTRATE [Suspect]
     Indication: PRODUCT USED FOR UNKNOWN INDICATION
     Route: 065
  4. ACETAMINOPHEN WITH PROPOXYPHENE HCL TAB [Suspect]
     Indication: PRODUCT USED FOR UNKNOWN INDICATION
     Route: 065

REACTIONS (10)
  - OVERDOSE [None]
  - VOMITING [None]
  - CARDIOVASCULAR DISORDER [None]
  - NERVOUS SYSTEM DISORDER [None]
  - HYPERTENSION [None]
  - LETHARGY [None]
  - GASTROINTESTINAL DISORDER [None]
  - MENTAL STATUS CHANGES [None]
  - TACHYCARDIA [None]
  - SOMNOLENCE [None]
